FAERS Safety Report 10478610 (Version 4)
Quarter: 2015Q1

REPORT INFORMATION
  Report Type: Report from Study
  Country: JP (occurrence: JP)
  Receive Date: 20140926
  Receipt Date: 20150318
  Transmission Date: 20150720
  Serious: Yes (Other)
  Sender: FDA-Public Use
  Company Number: JP-JNJFOC-20140919878

PATIENT
  Age: 52 Year
  Sex: Female
  Weight: 45 kg

DRUGS (11)
  1. NON-PYRINE COLD PREPARATION [Concomitant]
     Active Substance: UNSPECIFIED INGREDIENT
     Indication: PHARYNGITIS
     Route: 048
     Dates: start: 20140710, end: 20140716
  2. TRANSAMIN [Concomitant]
     Active Substance: TRANEXAMIC ACID
     Indication: PHARYNGITIS
     Route: 048
     Dates: start: 20140710, end: 20140716
  3. RIBAVIRIN. [Suspect]
     Active Substance: RIBAVIRIN
     Indication: CHRONIC HEPATITIS C
     Route: 048
     Dates: start: 20140320, end: 20140903
  4. PEGINTRON [Suspect]
     Active Substance: PEGINTERFERON ALFA-2B
     Indication: CHRONIC HEPATITIS C
     Route: 058
     Dates: start: 20140320, end: 20140828
  5. DOMPERIDONE [Concomitant]
     Active Substance: DOMPERIDONE
     Route: 048
     Dates: start: 20140612, end: 20140625
  6. MEDICON [Concomitant]
     Active Substance: DEXTROMETHORPHAN HYDROBROMIDE
     Indication: BRONCHITIS
     Route: 048
     Dates: start: 20140724, end: 20140730
  7. SOVRIAD [Suspect]
     Active Substance: SIMEPREVIR
     Indication: CHRONIC HEPATITIS C
     Route: 048
     Dates: start: 20140320, end: 20140611
  8. MUCODYNE [Concomitant]
     Active Substance: CARBOCYSTEINE
     Indication: BRONCHITIS
     Route: 048
     Dates: start: 20140724, end: 20140730
  9. OZEX [Concomitant]
     Active Substance: TOSUFLOXACIN TOSYLATE
     Indication: BRONCHITIS
     Route: 048
     Dates: start: 20140724, end: 20140730
  10. LOXONIN [Concomitant]
     Active Substance: LOXOPROFEN SODIUM
     Indication: PROPHYLAXIS
     Route: 048
     Dates: start: 20140320, end: 20140327
  11. ISODINE [Concomitant]
     Active Substance: POVIDONE-IODINE
     Indication: PHARYNGITIS
     Route: 048
     Dates: start: 20140710, end: 20140716

REACTIONS (6)
  - Pruritus [Recovered/Resolved]
  - Neutrophil count decreased [Recovered/Resolved]
  - Platelet count decreased [Recovered/Resolved]
  - Nausea [Recovered/Resolved]
  - Pharyngitis [Recovered/Resolved]
  - Bronchitis [Recovered/Resolved]

NARRATIVE: CASE EVENT DATE: 20140403
